FAERS Safety Report 9462009 (Version 2)
Quarter: 2013Q4

REPORT INFORMATION
  Report Type: Report from Study
  Country: HK (occurrence: HK)
  Receive Date: 20130816
  Receipt Date: 20131121
  Transmission Date: 20140711
  Serious: Yes (Hospitalization)
  Sender: FDA-Public Use
  Company Number: HK-PFIZER INC-2013228052

PATIENT
  Age: 66 Year
  Sex: Female
  Weight: 57.2 kg

DRUGS (3)
  1. AXITINIB [Suspect]
     Indication: HEPATOCELLULAR CARCINOMA
     Dosage: 5 MG, 2X/DAY
     Route: 048
     Dates: start: 20130729, end: 20130805
  2. ENTECAVIR [Concomitant]
     Indication: VIRAL HEPATITIS CARRIER
     Dosage: UNK
     Route: 048
     Dates: start: 20110216
  3. PROPRANOLOL [Concomitant]
     Indication: PORTAL HYPERTENSION
     Dosage: UNK
     Route: 048
     Dates: start: 20110114

REACTIONS (1)
  - Pyrexia [Recovered/Resolved]
